FAERS Safety Report 9326525 (Version 2)
Quarter: 2013Q2

REPORT INFORMATION
  Report Type: Spontaneous
  Country: US (occurrence: US)
  Receive Date: 20130604
  Receipt Date: 20130607
  Transmission Date: 20140414
  Serious: Yes (Hospitalization)
  Sender: FDA-Public Use
  Company Number: US-PFIZER INC-2013149036

PATIENT
  Age: 65 Year
  Sex: Male
  Weight: 95.2 kg

DRUGS (24)
  1. NITROSTAT [Suspect]
     Indication: MYOCARDIAL BRIDGING
     Dosage: 0.4 MG, AS NEEDED
     Route: 060
     Dates: start: 1999
  2. PROTONIX [Suspect]
     Indication: GASTROOESOPHAGEAL REFLUX DISEASE
     Dosage: 40 MG, 2X/DAY
  3. SPIRIVA [Concomitant]
     Indication: CHRONIC OBSTRUCTIVE PULMONARY DISEASE
     Dosage: 2 PUFFS EACH MORNING
     Route: 055
  4. PRO-AIR [Concomitant]
     Indication: CHRONIC OBSTRUCTIVE PULMONARY DISEASE
     Dosage: 2 PUFFS EVERY 6 HRS AS NEEDED
     Route: 055
  5. ADVAIR [Concomitant]
     Dosage: 1 INHALATION EVERY 12 HRS
     Route: 055
  6. MONTELUKAST SODIUM [Concomitant]
     Indication: CHRONIC OBSTRUCTIVE PULMONARY DISEASE
     Dosage: 10 MG, 1X/DAY
     Route: 048
  7. ALLEGRA [Concomitant]
     Indication: CHRONIC OBSTRUCTIVE PULMONARY DISEASE
     Dosage: 180 MG, 1X/DAY
     Route: 048
  8. DILTIAZEM ER [Concomitant]
     Indication: CARDIAC DISORDER
     Dosage: 240 MG, 1X/DAY
     Route: 048
  9. NITROQUICK [Concomitant]
     Indication: CHEST PAIN
     Dosage: 0.4 MG, UNK
     Route: 060
  10. COREG [Concomitant]
     Indication: BLOOD PRESSURE MANAGEMENT
     Dosage: 3.125 MG, 2X/DAY
  11. IMDUR ER [Concomitant]
     Indication: ATRIOVENTRICULAR BLOCK
     Dosage: 30 MG, 1X/DAY
  12. COZAAR [Concomitant]
     Indication: BLOOD PRESSURE MANAGEMENT
     Dosage: 50 MG, 2X/DAY
  13. WELLBUTRIN SR [Concomitant]
     Dosage: 150 MG, 2X/DAY
     Route: 048
  14. SEROQUEL [Concomitant]
     Indication: SLEEP DISORDER
     Dosage: 50 MG, 1X/DAY
     Route: 048
  15. MOBIC [Concomitant]
     Indication: ARTHRALGIA
     Dosage: 15 MG, 1X/DAY
     Route: 048
  16. DOCQLACE [Concomitant]
     Indication: FAECES HARD
     Dosage: 100 MG, 1X/DAY
     Route: 048
  17. CRESTOR [Concomitant]
     Indication: BLOOD CHOLESTEROL ABNORMAL
     Dosage: 10 MG, 1X/DAY
  18. AVODART [Concomitant]
     Indication: PROSTATIC DISORDER
     Dosage: 0.5 MG, 1X/DAY
  19. BENZONATATE [Concomitant]
     Indication: COUGH
     Dosage: 100 MG, UNK
  20. ACETYLSALICYLIC ACID [Concomitant]
     Dosage: 325 MG, 1X/DAY
  21. OSTEO BI-FLEX [Concomitant]
     Indication: ARTHRALGIA
     Dosage: INTERCHANGEABLY (2 EACH MORNING + EVENING)
  22. MOVE FREE ULTRA [Concomitant]
     Indication: ARTHRALGIA
     Dosage: INTERCHANGEABLY (2 EACH MORNING + EVENING)
  23. DIPHENHYDRAMINE [Concomitant]
     Indication: HYPERSENSITIVITY
     Dosage: 1 CAPSULE AS NEEDED, SPARINGLY
  24. IBUPROFEN [Concomitant]
     Dosage: 200 MG, AS NEEDED

REACTIONS (2)
  - Pneumonia [Recovering/Resolving]
  - Nasopharyngitis [Recovering/Resolving]
